FAERS Safety Report 21257233 (Version 1)
Quarter: 2022Q3

REPORT INFORMATION
  Report Type: Spontaneous
  Country: US (occurrence: US)
  Receive Date: 20220826
  Receipt Date: 20220826
  Transmission Date: 20221026
  Serious: No
  Sender: FDA-Public Use
  Company Number: US-BRISTOL-MYERS SQUIBB COMPANY-2022-090252

PATIENT
  Age: 85 Year
  Sex: Female
  Weight: 87.99 kg

DRUGS (1)
  1. ELIQUIS [Suspect]
     Active Substance: APIXABAN
     Indication: Product used for unknown indication
     Dosage: DOSE : 5MG;     FREQ : TWICE DAILY
     Route: 048
     Dates: start: 202203

REACTIONS (9)
  - Chest pain [Unknown]
  - Respiratory disorder [Unknown]
  - Dizziness [Unknown]
  - Syncope [Unknown]
  - Dyspnoea [Unknown]
  - Arthralgia [Unknown]
  - Spinal disorder [Unknown]
  - Condition aggravated [Unknown]
  - Condition aggravated [Unknown]

NARRATIVE: CASE EVENT DATE: 20220101
